FAERS Safety Report 5971419-2 (Version None)
Quarter: 2008Q4

REPORT INFORMATION
  Report Type: 
  Country: None (occurrence: None)
  Receive Date: 20081130
  Receipt Date: 20081121
  Transmission Date: 20090506
  Serious: Yes (Hospitalization)
  Sender: FDA-Public Use
  Company Number: FR-PFIZER INC-2008092734

PATIENT
  Sex: Female

DRUGS (7)
  1. XANAX [Suspect]
     Indication: ANXIETY
     Dates: end: 20081008
  2. ARICEPT [Suspect]
     Indication: DEMENTIA ALZHEIMER'S TYPE
     Route: 048
     Dates: start: 20081004, end: 20081008
  3. ARICEPT [Suspect]
     Indication: DEMENTIA
  4. NOCTAMID [Suspect]
     Indication: INSOMNIA
     Route: 048
     Dates: start: 20081003, end: 20081008
  5. ZYPREXA [Suspect]
     Indication: SCHIZOPHRENIA
     Route: 048
     Dates: start: 20080929, end: 20081008
  6. STABLON [Suspect]
     Indication: DEPRESSION
     Route: 048
     Dates: end: 20081009
  7. ZOLPIDEM [Suspect]
     Indication: INSOMNIA
     Route: 048
     Dates: start: 20081001, end: 20081008

REACTIONS (1)
  - AGRANULOCYTOSIS [None]
